FAERS Safety Report 5280040-3 (Version None)
Quarter: 2007Q1

REPORT INFORMATION
  Report Type: 
  Country: None (occurrence: None)
  Receive Date: 20070329
  Receipt Date: 20070314
  Transmission Date: 20070707
  Serious: Yes (Life-Threatening, Hospitalization)
  Sender: FDA-Public Use
  Company Number: AU-AMGEN-US214971

PATIENT
  Sex: Female
  Weight: 66.8 kg

DRUGS (12)
  1. PALIFERMIN - BLINDED [Suspect]
     Indication: STOMATITIS
     Route: 042
     Dates: start: 20070308, end: 20070310
  2. ACETAMINOPHEN W/ CODEINE [Concomitant]
     Route: 048
     Dates: start: 20070309, end: 20070310
  3. CLEXANE [Concomitant]
     Route: 058
     Dates: start: 20070311
  4. COLOXYL WITH SENNA [Concomitant]
     Route: 048
     Dates: start: 20070305, end: 20070307
  5. ONDANSETRON [Concomitant]
     Route: 042
     Dates: start: 20070307
  6. ACETAMINOPHEN [Concomitant]
     Route: 048
     Dates: start: 20070304
  7. VALACYCLOVIR HYDROCHLORIDE [Concomitant]
     Route: 048
     Dates: start: 20070304
  8. ITRACONAZOLE [Concomitant]
     Route: 048
     Dates: start: 20070304, end: 20070310
  9. ALLOPURINOL [Concomitant]
     Route: 048
     Dates: start: 20070305
  10. NYSTATIN [Concomitant]
     Route: 048
     Dates: start: 20070304
  11. CHLORHEXIDINE [Concomitant]
     Route: 048
     Dates: start: 20070304
  12. MAXOLON [Concomitant]
     Route: 042
     Dates: start: 20070303

REACTIONS (1)
  - HYPOXIA [None]
